FAERS Safety Report 7039064-8 (Version None)
Quarter: 2010Q4

REPORT INFORMATION
  Report Type: 
  Country: None (occurrence: None)
  Receive Date: 20101012
  Receipt Date: 20101005
  Transmission Date: 20110411
  Serious: Yes (Other)
  Sender: FDA-Public Use
  Company Number: US-JNJFOC-20080303178

PATIENT
  Sex: Female
  Weight: 108.41 kg

DRUGS (1)
  1. IBUPROFEN [Suspect]
     Indication: ARTHRITIS

REACTIONS (5)
  - DIABETES MELLITUS [None]
  - DRUG INEFFECTIVE [None]
  - HYPERTENSION [None]
  - INSOMNIA [None]
  - WEIGHT INCREASED [None]
